FAERS Safety Report 18134442 (Version 2)
Quarter: 2020Q3

REPORT INFORMATION
  Report Type: Spontaneous
  Country: US (occurrence: US)
  Receive Date: 20200811
  Receipt Date: 20200910
  Transmission Date: 20201103
  Serious: Yes (Other)
  Sender: FDA-Public Use
  Company Number: US-PFIZER INC-2020301012

PATIENT
  Age: 41 Year
  Sex: Female
  Weight: 77.11 kg

DRUGS (8)
  1. SULINDAC. [Concomitant]
     Active Substance: SULINDAC
     Indication: PANCREATIC DISORDER
  2. CHANTIX [Suspect]
     Active Substance: VARENICLINE TARTRATE
     Dosage: UNK
     Route: 048
     Dates: start: 201901
  3. SULINDAC. [Concomitant]
     Active Substance: SULINDAC
     Indication: ARTHRITIS
     Dosage: 150 MG, DAILY
     Route: 048
     Dates: start: 201909, end: 202002
  4. CHANTIX [Suspect]
     Active Substance: VARENICLINE TARTRATE
     Indication: SMOKING CESSATION THERAPY
     Dosage: 0.5 MG, 1X/DAY (FOR THREE DAYS)
     Route: 048
  5. CHANTIX [Suspect]
     Active Substance: VARENICLINE TARTRATE
     Dosage: 0.5 MG, 2X/DAY (FOR FOUR DAYS)
     Route: 048
  6. CHANTIX [Suspect]
     Active Substance: VARENICLINE TARTRATE
     Dosage: UNK
     Route: 048
     Dates: start: 201909, end: 202002
  7. CHANTIX [Suspect]
     Active Substance: VARENICLINE TARTRATE
     Dosage: 1.5 MG, DAILY (1 MG IN MORNING AND 0.5 MG AT NIGHT)
     Route: 048
  8. ZANTAC [Concomitant]
     Active Substance: RANITIDINE HYDROCHLORIDE
     Indication: NAUSEA
     Dosage: UNK, 37.5MG (ONE HALF OF A 75MG TABLET)
     Dates: start: 201909, end: 202002

REACTIONS (10)
  - Nausea [Recovered/Resolved]
  - Constipation [Unknown]
  - Gastrointestinal bacterial overgrowth [Not Recovered/Not Resolved]
  - Gastrointestinal motility disorder [Unknown]
  - Nightmare [Recovered/Resolved]
  - Abnormal dreams [Unknown]
  - Eye disorder [Unknown]
  - Weight increased [Unknown]
  - Suicidal ideation [Recovered/Resolved]
  - Therapeutic response unexpected [Unknown]

NARRATIVE: CASE EVENT DATE: 2009
